FAERS Safety Report 9303783 (Version 3)
Quarter: 2013Q3

REPORT INFORMATION
  Report Type: Spontaneous
  Country: US (occurrence: US)
  Receive Date: 20130522
  Receipt Date: 20130919
  Transmission Date: 20140515
  Serious: Yes (Other)
  Sender: FDA-Public Use
  Company Number: US-GLAXOSMITHKLINE-A1024300A

PATIENT
  Age: 77 Year
  Sex: Female
  Weight: 79.1 kg

DRUGS (6)
  1. VOTRIENT [Suspect]
     Indication: RENAL CANCER
     Dosage: 800MG PER DAY
     Route: 065
     Dates: start: 20130423, end: 20130525
  2. ATENOLOL [Concomitant]
  3. ATENOLOL [Concomitant]
  4. L THYROXINE [Concomitant]
  5. UNSPECIFIED MEDICATION [Concomitant]
  6. PRAVASTATIN [Concomitant]

REACTIONS (10)
  - Tooth infection [Recovered/Resolved]
  - Migraine [Recovered/Resolved]
  - Blood pressure increased [Recovered/Resolved]
  - Pain in extremity [Recovered/Resolved]
  - Dyspnoea [Recovered/Resolved]
  - Nausea [Recovered/Resolved]
  - Diplopia [Recovered/Resolved]
  - Tooth extraction [Recovered/Resolved]
  - Headache [Recovered/Resolved]
  - Procedural pain [Recovered/Resolved]
